FAERS Safety Report 7035122-2 (Version None)
Quarter: 2010Q4

REPORT INFORMATION
  Report Type: 
  Country: None (occurrence: None)
  Receive Date: 20101008
  Receipt Date: 20101001
  Transmission Date: 20110411
  Serious: Yes (Other)
  Sender: FDA-Public Use
  Company Number: PHHY2010CA66114

PATIENT

DRUGS (1)
  1. STALEVO 100 [Suspect]
     Route: 048

REACTIONS (1)
  - COLONIC PSEUDO-OBSTRUCTION [None]
